FAERS Safety Report 4317599-6 (Version None)
Quarter: 2004Q1

REPORT INFORMATION
  Report Type: 
  Country: None (occurrence: None)
  Receive Date: 20040305
  Receipt Date: 20040130
  Transmission Date: 20041129
  Serious: Yes (Hospitalization, Other)
  Sender: FDA-Public Use
  Company Number: US-SHR-04-019543

PATIENT
  Age: 51 Year
  Sex: Male

DRUGS (6)
  1. CAMPATH [Suspect]
     Dosage: 3/10/30MG, SUBCUTANEOUS
     Route: 058
     Dates: start: 20031201, end: 20040107
  2. BENADRYL ^ACHE^ (MENTHOL, DIPHENHYDRAMINE HYDROCHLORIDE, AMMONIUM CHLO [Concomitant]
  3. TYLENOL (CAPLET) [Concomitant]
  4. FAMCICLOVIR (FAMCICLOVIR) [Concomitant]
  5. SEPTRA DS [Concomitant]
  6. ALLOPURINOL [Concomitant]

REACTIONS (3)
  - ACUTE RESPIRATORY DISTRESS SYNDROME [None]
  - CYTOMEGALOVIRUS INFECTION [None]
  - RENAL FAILURE [None]
